FAERS Safety Report 17570700 (Version 1)
Quarter: 2020Q1

REPORT INFORMATION
  Report Type: Report from Study
  Country: JP (occurrence: JP)
  Receive Date: 20200323
  Receipt Date: 20200323
  Transmission Date: 20200409
  Serious: Yes (Hospitalization, Other)
  Sender: FDA-Public Use
  Company Number: NVSJ2020JP003571

PATIENT
  Age: 8 Year
  Sex: Female

DRUGS (2)
  1. ILARIS [Suspect]
     Active Substance: CANAKINUMAB
     Dosage: 111.6 MG
     Route: 058
     Dates: start: 20190207
  2. ILARIS [Suspect]
     Active Substance: CANAKINUMAB
     Indication: STILL^S DISEASE
     Dosage: 111.2 MG
     Route: 058
     Dates: start: 20190110

REACTIONS (4)
  - Asthma [Recovering/Resolving]
  - Viral infection [Recovered/Resolved]
  - Hypersensitivity [Unknown]
  - Haemophagocytic lymphohistiocytosis [Recovered/Resolved]

NARRATIVE: CASE EVENT DATE: 20190301
